FAERS Safety Report 20813226 (Version 1)
Quarter: 2022Q2

REPORT INFORMATION
  Report Type: Spontaneous
  Country: US (occurrence: US)
  Receive Date: 20220511
  Receipt Date: 20220511
  Transmission Date: 20220721
  Serious: Yes (Other)
  Sender: FDA-Public Use
  Company Number: US-LOTUS-2022-LOTUS-048783

PATIENT
  Age: 19 Year
  Sex: Female

DRUGS (10)
  1. METHOTREXATE [Suspect]
     Active Substance: METHOTREXATE
     Indication: Dermatomyositis
  2. PREDNISONE [Suspect]
     Active Substance: PREDNISONE
     Indication: Dermatomyositis
  3. METHYLPREDNISOLONE [Suspect]
     Active Substance: METHYLPREDNISOLONE
     Indication: Dermatomyositis
  4. HYDROXYCHLOROQUINE [Suspect]
     Active Substance: HYDROXYCHLOROQUINE
     Indication: Dermatomyositis
  5. ABATACEPT [Suspect]
     Active Substance: ABATACEPT
     Indication: Dermatomyositis
  6. CYCLOPHOSPHAMIDE [Suspect]
     Active Substance: CYCLOPHOSPHAMIDE
     Indication: Dermatomyositis
  7. MYCOPHENOLATE MOFETIL [Suspect]
     Active Substance: MYCOPHENOLATE MOFETIL
     Indication: Dermatomyositis
  8. RITUXIMAB [Suspect]
     Active Substance: RITUXIMAB
     Indication: Dermatomyositis
  9. NIFEDIPINE [Suspect]
     Active Substance: NIFEDIPINE
     Indication: Dermatomyositis
  10. SILDENAFIL [Suspect]
     Active Substance: SILDENAFIL
     Indication: Dermatomyositis

REACTIONS (1)
  - Nodular regenerative hyperplasia [Unknown]
